FAERS Safety Report 4485836-3 (Version None)
Quarter: 2004Q3

REPORT INFORMATION
  Report Type: 
  Country: None (occurrence: None)
  Receive Date: 20040921
  Receipt Date: 20031002
  Transmission Date: 20050211
  Serious: Yes (Death)
  Sender: FDA-Public Use
  Company Number: 163-20785-03100154

PATIENT

DRUGS (7)
  1. THALOMID [Suspect]
     Indication: MULTIPLE MYELOMA
     Dosage: 400 MG, QD
     Dates: start: 20001116, end: 20011217
  2. DECADRON [Suspect]
     Indication: MULTIPLE MYELOMA
     Dosage: 40 MG, QD X 4
     Dates: start: 20001116
  3. CISPLATIN [Suspect]
     Indication: MULTIPLE MYELOMA
     Dosage: 10 MG/M2, QD X 4
     Dates: start: 20001116
  4. ADRIAMYCIN PFS [Suspect]
     Indication: MULTIPLE MYELOMA
     Dosage: 10 MG/M2, QD X 4
     Dates: start: 20001116
  5. CYCLOPHOSPHAMIDE [Suspect]
     Indication: MULTIPLE MYELOMA
     Dosage: 400 MG/M2, QD X 4
     Dates: start: 20001116
  6. ETOPOSIDE [Suspect]
     Indication: MULTIPLE MYELOMA
     Dosage: 40 MG/M2, QD X 4
     Dates: start: 20001116
  7. MELPHALAN (MELPHALAN) [Suspect]
     Indication: MULTIPLE MYELOMA
     Dosage: 200 MG

REACTIONS (1)
  - DEATH [None]
